FAERS Safety Report 6675474-6 (Version None)
Quarter: 2010Q2

REPORT INFORMATION
  Report Type: 
  Country: None (occurrence: None)
  Receive Date: 20100409
  Receipt Date: 20100408
  Transmission Date: 20101027
  Serious: Yes (Death)
  Sender: FDA-Public Use
  Company Number: A0854156A

PATIENT
  Age: 91 Year
  Sex: Female

DRUGS (16)
  1. REQUIP XL [Suspect]
     Indication: PARKINSON'S DISEASE
     Dosage: 2MG PER DAY
     Route: 048
  2. MYCELIN 3 [Concomitant]
  3. ASPIRIN [Concomitant]
  4. SINEMET [Concomitant]
  5. CLARINEX [Concomitant]
  6. PROZAC [Concomitant]
  7. FOSAMAX [Concomitant]
  8. POTASSIUM CHLORIDE [Concomitant]
  9. M.V.I. [Concomitant]
  10. NASACORT [Concomitant]
  11. UNKNOWN MEDICATION [Concomitant]
  12. CALCIUM [Concomitant]
  13. PRILOSEC [Concomitant]
  14. SYNTHROID [Concomitant]
  15. VIT C [Concomitant]
  16. XALATAN [Concomitant]

REACTIONS (1)
  - DEATH [None]
